FAERS Safety Report 21279187 (Version 2)
Quarter: 2023Q1

REPORT INFORMATION
  Report Type: Report from Study
  Country: FR (occurrence: None)
  Receive Date: 20220901
  Receipt Date: 20230105
  Transmission Date: 20230417
  Serious: Yes (Life-Threatening, Hospitalization)
  Sender: FDA-Public Use
  Company Number: FR-ROCHE-3040262

PATIENT
  Age: 74 Year
  Sex: Female
  Weight: 57.6 kg

DRUGS (9)
  1. RITUXIMAB [Suspect]
     Active Substance: RITUXIMAB
     Indication: Mantle cell lymphoma
     Dosage: MAINTENANCE. MOST RECENT DOSE DATE: 14/OCT/2019
     Route: 058
     Dates: start: 20190911
  2. RITUXIMAB [Suspect]
     Active Substance: RITUXIMAB
     Dosage: MAINTENANCE
     Route: 058
     Dates: start: 20220128
  3. RITUXIMAB [Suspect]
     Active Substance: RITUXIMAB
     Indication: Mantle cell lymphoma
     Dosage: INDUCTION
     Route: 041
     Dates: start: 20191002, end: 20200206
  4. CYCLOPHOSPHAMIDE [Concomitant]
     Active Substance: CYCLOPHOSPHAMIDE
     Indication: Mantle cell lymphoma
     Dates: start: 20191002, end: 20200206
  5. DOXORUBICIN [Concomitant]
     Active Substance: DOXORUBICIN
     Indication: Mantle cell lymphoma
     Dates: start: 20191002, end: 20200206
  6. VINCRISTINE [Concomitant]
     Active Substance: VINCRISTINE
     Indication: Mantle cell lymphoma
     Dates: start: 20191002, end: 20200206
  7. PREDNISONE [Concomitant]
     Active Substance: PREDNISONE
     Indication: Mantle cell lymphoma
     Dates: start: 20191002, end: 20200206
  8. CYTARABINE [Concomitant]
     Active Substance: CYTARABINE
     Indication: Mantle cell lymphoma
  9. DEXAMETHASONE [Concomitant]
     Active Substance: DEXAMETHASONE
     Indication: Mantle cell lymphoma

REACTIONS (1)
  - COVID-19 [Recovered/Resolved]

NARRATIVE: CASE EVENT DATE: 20211221
